FAERS Safety Report 6589152-5 (Version None)
Quarter: 2010Q1

REPORT INFORMATION
  Report Type: 
  Country: None (occurrence: None)
  Receive Date: 20100212
  Receipt Date: 20100126
  Transmission Date: 20100710
  Serious: Yes (Other)
  Sender: FDA-Public Use
  Company Number: 2010SP000301

PATIENT
  Age: 36 Year
  Sex: Female

DRUGS (11)
  1. ALVESCO [Suspect]
     Indication: ASTHMA
     Dosage: INHALATION
     Route: 055
  2. MUCOSOLVAN L (AMBROXOL HYDROCHLORIDE) [Suspect]
     Indication: BRONCHITIS
     Dosage: 45 MG; ORAL
     Route: 048
     Dates: start: 20100112, end: 20100122
  3. GARENOXACIN [Concomitant]
  4. LANIRAPID [Concomitant]
  5. CLEANAL [Concomitant]
  6. HUSCODE [Concomitant]
  7. UNIPHYL [Concomitant]
  8. KIPRES [Concomitant]
  9. TAKEPRON [Concomitant]
  10. METHYLEPHEDRINE HYDROCHLORIDE [Concomitant]
  11. HYDROCHLORIDE-DL [Concomitant]

REACTIONS (3)
  - ECZEMA [None]
  - LIVER DISORDER [None]
  - PRURITUS [None]
